FAERS Safety Report 15791080 (Version 4)
Quarter: 2020Q3

REPORT INFORMATION
  Report Type: Report from Study
  Country: US (occurrence: US)
  Receive Date: 20190104
  Receipt Date: 20200909
  Transmission Date: 20201102
  Serious: Yes (Other)
  Sender: FDA-Public Use
  Company Number: PHEH2018US055729

PATIENT
  Sex: Male

DRUGS (1)
  1. COSENTYX [Suspect]
     Active Substance: SECUKINUMAB
     Indication: PSORIASIS
     Dosage: 300 MG, EVERY 4 WEEKS
     Route: 065
     Dates: start: 20180213

REACTIONS (6)
  - Gingivitis [Unknown]
  - Candida infection [Unknown]
  - Oropharyngeal candidiasis [Unknown]
  - Influenza [Unknown]
  - Tooth infection [Unknown]
  - Cataract [Unknown]

NARRATIVE: CASE EVENT DATE: 2018
